FAERS Safety Report 9115512 (Version 2)
Quarter: 2013Q1

REPORT INFORMATION
  Report Type: Spontaneous
  Country: US (occurrence: US)
  Receive Date: 20130225
  Receipt Date: 20130319
  Transmission Date: 20140127
  Serious: No
  Sender: FDA-Public Use
  Company Number: US-PFIZER INC-2013064095

PATIENT
  Age: 18 Year
  Sex: Female
  Weight: 88.9 kg

DRUGS (1)
  1. DEPO-PROVERA [Suspect]
     Indication: CONTRACEPTION
     Dosage: 150 MG/UNIT, Q 12 WEEKS
     Route: 030
     Dates: start: 20130215, end: 20130218

REACTIONS (6)
  - Injection site rash [Recovering/Resolving]
  - Injection site inflammation [Recovering/Resolving]
  - Injection site erythema [Recovering/Resolving]
  - Injection site pruritus [Recovering/Resolving]
  - Injection site pain [Recovering/Resolving]
  - Livedo reticularis [Unknown]
